FAERS Safety Report 5054309-1 (Version None)
Quarter: 2006Q3

REPORT INFORMATION
  Report Type: 
  Country: None (occurrence: None)
  Receive Date: 20060713
  Receipt Date: 20060705
  Transmission Date: 20061208
  Serious: Yes (Congenital Anomaly)
  Sender: FDA-Public Use
  Company Number: 2006BI009044

PATIENT
  Sex: Female
  Weight: 3.78 kg

DRUGS (1)
  1. AVONEX [Suspect]
     Indication: MULTIPLE SCLEROSIS
     Dosage: 30 UG; QW; TRPL
     Route: 064
     Dates: start: 20030301, end: 20050729

REACTIONS (2)
  - DRUG EXPOSURE DURING PREGNANCY [None]
  - PILONIDAL CYST [None]
